FAERS Safety Report 8821041 (Version 5)
Quarter: 2014Q1

REPORT INFORMATION
  Report Type: Spontaneous
  Country: US (occurrence: US)
  Receive Date: 20121002
  Receipt Date: 20140103
  Transmission Date: 20141002
  Serious: No
  Sender: FDA-Public Use
  Company Number: US-ASTRAZENECA-2012SE74608

PATIENT
  Age: 63 Year
  Sex: Female
  Weight: 90.7 kg

DRUGS (12)
  1. NEXIUM EERD [Suspect]
     Indication: GASTROOESOPHAGEAL REFLUX DISEASE
     Route: 048
     Dates: start: 2010
  2. NEXIUM EERD [Suspect]
     Indication: DUODENAL ULCER
     Route: 048
     Dates: start: 2010
  3. NEXIUM EERD [Suspect]
     Indication: GASTROOESOPHAGEAL REFLUX DISEASE
     Route: 048
     Dates: start: 2011
  4. NEXIUM EERD [Suspect]
     Indication: DUODENAL ULCER
     Route: 048
     Dates: start: 2011
  5. PRILOSEC [Suspect]
     Route: 048
  6. AMITRIPTYLINE [Concomitant]
     Indication: INSOMNIA
  7. TYLENOL EXTRA STRENGTH [Concomitant]
     Indication: ARTHRITIS
  8. TYLENOL EXTRA STRENGTH [Concomitant]
     Indication: PAIN
  9. ANTIBIOTICS [Concomitant]
  10. PROPANOLOL [Concomitant]
     Indication: TACHYCARDIA
  11. ALOE VERA [Concomitant]
     Indication: GASTRIC DISORDER
  12. PROBIOTIC [Concomitant]
     Indication: GASTRIC DISORDER

REACTIONS (14)
  - Nervousness [Unknown]
  - Feeling jittery [Unknown]
  - Foot fracture [Unknown]
  - Arthritis [Unknown]
  - Fall [Unknown]
  - Dyspepsia [Unknown]
  - Malaise [Unknown]
  - Depression [Unknown]
  - Abdominal discomfort [Unknown]
  - Off label use [Unknown]
  - Drug ineffective [Unknown]
  - Drug dose omission [Unknown]
  - Off label use [Unknown]
  - Drug ineffective for unapproved indication [Unknown]
